FAERS Safety Report 21004939 (Version 2)
Quarter: 2022Q3

REPORT INFORMATION
  Report Type: Spontaneous
  Country: ES (occurrence: ES)
  Receive Date: 20220624
  Receipt Date: 20220926
  Transmission Date: 20221027
  Serious: Yes (Death, Hospitalization, Other)
  Sender: FDA-Public Use
  Company Number: ES-NOVARTISPH-NVSC2022ES141149

PATIENT
  Age: 64 Year
  Sex: Female

DRUGS (10)
  1. ETOPOSIDE [Suspect]
     Active Substance: ETOPOSIDE
     Indication: Plasma cell myeloma
     Dosage: UNK
     Route: 065
     Dates: start: 20220512
  2. DEXAMETHASONE [Suspect]
     Active Substance: DEXAMETHASONE
     Indication: Plasma cell myeloma
     Dosage: UNK
     Route: 065
     Dates: start: 20220512
  3. CISPLATIN [Suspect]
     Active Substance: CISPLATIN
     Indication: Plasma cell myeloma
     Dosage: UNK
     Route: 065
     Dates: start: 20220512
  4. CYCLOPHOSPHAMIDE [Suspect]
     Active Substance: CYCLOPHOSPHAMIDE
     Indication: Plasma cell myeloma
     Dosage: UNK
     Route: 065
     Dates: start: 20220512
  5. KYPROLIS [Suspect]
     Active Substance: CARFILZOMIB
     Indication: Plasma cell myeloma
     Dosage: UNK
     Route: 065
     Dates: start: 20220512
  6. KYPROLIS [Suspect]
     Active Substance: CARFILZOMIB
     Dosage: 20 MG/M2 ( 31MG)
     Route: 065
     Dates: start: 20220517
  7. KYPROLIS [Suspect]
     Active Substance: CARFILZOMIB
     Dosage: 20 MG/M2 (31MG)
     Route: 065
     Dates: start: 20220518
  8. KYPROLIS [Suspect]
     Active Substance: CARFILZOMIB
     Dosage: 27 MG/M2 (42 MG)
     Route: 065
     Dates: start: 20220524
  9. KYPROLIS [Suspect]
     Active Substance: CARFILZOMIB
     Dosage: 27 MG/M2 (42 MG)
     Route: 065
     Dates: start: 20220525
  10. ADRIAMYCIN [Suspect]
     Active Substance: DOXORUBICIN HYDROCHLORIDE
     Indication: Plasma cell myeloma
     Dosage: UNK
     Route: 065
     Dates: start: 20220512

REACTIONS (17)
  - Death [Fatal]
  - Acute pulmonary oedema [Recovered/Resolved]
  - Left ventricular dysfunction [Recovered/Resolved]
  - Plasma cell myeloma [Unknown]
  - Ejection fraction decreased [Unknown]
  - Thrombocytopenia [Recovered/Resolved]
  - Atrial fibrillation [Recovered/Resolved]
  - Cytopenia [Recovered/Resolved]
  - Off label use [Unknown]
  - Hypokalaemia [Unknown]
  - Long QT syndrome [Recovered/Resolved]
  - Hypocalcaemia [Unknown]
  - COVID-19 [Recovered/Resolved]
  - Systolic dysfunction [Recovering/Resolving]
  - Hypokinesia [Recovered/Resolved]
  - Infection [Recovered/Resolved]
  - Hypomagnesaemia [Unknown]

NARRATIVE: CASE EVENT DATE: 20220526
